FAERS Safety Report 4458991-9 (Version None)
Quarter: 2004Q3

REPORT INFORMATION
  Report Type: 
  Country: None (occurrence: None)
  Receive Date: 20040923
  Receipt Date: 20040923
  Transmission Date: 20050211
  Serious: Yes (Congenital Anomaly)
  Sender: FDA-Public Use
  Company Number: None

PATIENT
  Sex: Female
  Weight: 63.5036 kg

DRUGS (2)
  1. CLOMIPHENE CITRATE [Suspect]
     Dosage: 50MG, 1 TABLET ORALLY FOR 5 DAYS
     Route: 048
     Dates: start: 20030216, end: 20030221
  2. MEDROXYPROGESTERONE [Suspect]

REACTIONS (7)
  - ACQUIRED TRACHEO-OESOPHAGEAL FISTULA [None]
  - ANAL ATRESIA [None]
  - CONGENITAL ANOMALY [None]
  - CONGENITAL VENTRICULAR SEPTAL DEFECT [None]
  - DRUG EXPOSURE DURING PREGNANCY [None]
  - FALLOT'S TETRALOGY [None]
  - OESOPHAGEAL ATRESIA [None]
